FAERS Safety Report 18435461 (Version 1)
Quarter: 2020Q4

REPORT INFORMATION
  Report Type: Other
  Country: CA (occurrence: CA)
  Receive Date: 20201027
  Receipt Date: 20201027
  Transmission Date: 20210114
  Serious: Yes (Hospitalization)
  Sender: FDA-Public Use
  Company Number: CA-CELLTRION INC.-2020CA029328

PATIENT

DRUGS (9)
  1. EPLERENONE. [Concomitant]
     Active Substance: EPLERENONE
  2. MEMANTINE. [Concomitant]
     Active Substance: MEMANTINE
  3. AMYLASE/LIPASE/PROTEASE [Concomitant]
     Active Substance: AMYLASE\LIPASE\PROTEASE
  4. DESIPRAMINE [Concomitant]
     Active Substance: DESIPRAMINE
  5. NIFEDIPINE. [Concomitant]
     Active Substance: NIFEDIPINE
  6. RITUXIMAB (UNKNOWN) [Suspect]
     Active Substance: RITUXIMAB
     Indication: RHEUMATOID ARTHRITIS
     Dosage: 1 EVERY 15 DAYS
     Route: 042
  7. ESOMEPRAZOLE. [Concomitant]
     Active Substance: ESOMEPRAZOLE MAGNESIUM
  8. KETAMINE [Concomitant]
     Active Substance: KETAMINE
  9. PANCREATIN [Concomitant]
     Active Substance: PANCRELIPASE

REACTIONS (4)
  - Vasospasm [Unknown]
  - Pancreatitis [Unknown]
  - Hypertension [Unknown]
  - Off label use [Unknown]
